FAERS Safety Report 15634066 (Version 1)
Quarter: 2018Q4

REPORT INFORMATION
  Report Type: Spontaneous
  Country: US (occurrence: US)
  Receive Date: 20181119
  Receipt Date: 20181119
  Transmission Date: 20190205
  Serious: No
  Sender: FDA-Public Use
  Company Number: US-COLLEGIUM PHARMACEUTICAL, INC.-2018CGM00270

PATIENT
  Age: 54 Year
  Sex: Female
  Weight: 78.01 kg

DRUGS (16)
  1. OMEPRAZOLE. [Concomitant]
     Active Substance: OMEPRAZOLE
     Dosage: 40 MG, 1X/DAY
  2. XANAX [Concomitant]
     Active Substance: ALPRAZOLAM
     Dosage: 1 MG, UP TO 3X/DAY AS NEEDED
  3. QUETIAPINE. [Concomitant]
     Active Substance: QUETIAPINE
     Dosage: 100 MG, 1X/DAY AT NIGHT
  4. MEDROXYPROGESTERONE [Concomitant]
     Active Substance: MEDROXYPROGESTERONE
     Dosage: 10 MG, 1X/DAY
  5. XTAMPZA ER [Suspect]
     Active Substance: OXYCODONE
     Indication: PAIN
     Dosage: 18 MG, 2X/DAY
     Route: 048
     Dates: start: 20180726, end: 2018
  6. UNSPECIFIED STOOL SOFTENERS [Concomitant]
  7. LYRICA [Concomitant]
     Active Substance: PREGABALIN
     Dosage: 150 MG, 1X/DAY
  8. BABY ASPIRIN [Concomitant]
     Active Substance: ASPIRIN
     Dosage: 81 MG, 2X/DAY
  9. ESTRADIOL. [Concomitant]
     Active Substance: ESTRADIOL
     Dosage: 1 MG, 1X/DAY
  10. OXYCODONE [Concomitant]
     Active Substance: OXYCODONE
     Dosage: 10 MG, AS NEEDED FOR BREAKTHROUGH PAIN
  11. BACLOFEN. [Concomitant]
     Active Substance: BACLOFEN
     Dosage: 20 MG, 3X/DAY
  12. TRIAMTERENE (AND HYDROCHLOROTHIAZIDE) [Concomitant]
     Dosage: 1 DOSAGE UNITS, 2X/DAY
  13. POTASSIUM [Concomitant]
     Active Substance: POTASSIUM
  14. MAGNESIUM [Concomitant]
     Active Substance: MAGNESIUM
  15. SIMVASTATIN. [Concomitant]
     Active Substance: SIMVASTATIN
     Dosage: 80 MG, 1X/DAY
  16. UNSPECIFIED LAXATIVE [Concomitant]

REACTIONS (6)
  - Drug effect incomplete [Not Recovered/Not Resolved]
  - Insomnia [Unknown]
  - Sleep disorder [Not Recovered/Not Resolved]
  - Breakthrough pain [Not Recovered/Not Resolved]
  - Dyspnoea [Unknown]
  - Back pain [Unknown]

NARRATIVE: CASE EVENT DATE: 2018
